FAERS Safety Report 10273858 (Version 2)
Quarter: 2014Q3

REPORT INFORMATION
  Report Type: Spontaneous
  Country: FR (occurrence: FR)
  Receive Date: 20140702
  Receipt Date: 20140714
  Transmission Date: 20150326
  Serious: Yes (Hospitalization)
  Sender: FDA-Public Use
  Company Number: FR-GLAXOSMITHKLINE-B1007661A

PATIENT
  Age: 32 Year
  Sex: Male

DRUGS (4)
  1. DUOTRAV [Concomitant]
     Active Substance: TIMOLOL\TRAVOPROST
  2. ZOVIRAX [Suspect]
     Active Substance: ACYCLOVIR
     Indication: VARICELLA
     Dosage: 750MG THREE TIMES PER DAY
     Route: 042
     Dates: start: 20140530, end: 20140606
  3. ATARAX [Suspect]
     Active Substance: HYDROXYZINE\HYDROXYZINE HYDROCHLORIDE
     Indication: PRODUCT USED FOR UNKNOWN INDICATION
     Dosage: 2UNIT PER DAY
     Route: 048
     Dates: start: 20140601, end: 20140608
  4. IOPIDINE [Concomitant]
     Active Substance: APRACLONIDINE HYDROCHLORIDE
     Route: 065

REACTIONS (2)
  - Normochromic normocytic anaemia [Recovering/Resolving]
  - Renal failure acute [Recovered/Resolved]

NARRATIVE: CASE EVENT DATE: 20140601
